FAERS Safety Report 6088002-3 (Version None)
Quarter: 2009Q1

REPORT INFORMATION
  Report Type: 
  Country: None (occurrence: None)
  Receive Date: 20090219
  Receipt Date: 20090213
  Transmission Date: 20090719
  Serious: Yes (Hospitalization)
  Sender: FDA-Public Use
  Company Number: 20096236

PATIENT
  Sex: Female

DRUGS (1)
  1. LIORESAL [Suspect]
     Indication: MUSCLE SPASTICITY
     Dosage: 436 MCG, DAILY, INTRATHECAL - SEE B
     Route: 037

REACTIONS (6)
  - CATHETER RELATED COMPLICATION [None]
  - CONFUSIONAL STATE [None]
  - MUSCLE SPASTICITY [None]
  - PRURITUS [None]
  - URINARY TRACT INFECTION [None]
  - WITHDRAWAL SYNDROME [None]
